FAERS Safety Report 16235589 (Version 1)
Quarter: 2019Q2

REPORT INFORMATION
  Report Type: Spontaneous
  Country: JP (occurrence: JP)
  Receive Date: 20190424
  Receipt Date: 20190424
  Transmission Date: 20190711
  Serious: Yes (Hospitalization)
  Sender: FDA-Public Use
  Company Number: JP-SUN PHARMACEUTICAL INDUSTRIES LTD-2019R1-205702

PATIENT
  Age: 24 Year
  Sex: Female

DRUGS (2)
  1. APRESOLINE HYDROCHLORIDE [Suspect]
     Active Substance: HYDRALAZINE HYDROCHLORIDE
     Indication: PRODUCT USED FOR UNKNOWN INDICATION
     Dosage: UNK
     Route: 048
  2. RITODRINE HYDROCHLORIDE [Concomitant]
     Active Substance: RITODRINE HYDROCHLORIDE
     Dosage: 2.8 UNK
     Route: 041

REACTIONS (3)
  - Retroplacental haematoma [Recovering/Resolving]
  - Therapeutic product effect incomplete [Unknown]
  - Premature separation of placenta [Recovering/Resolving]
